FAERS Safety Report 15705868 (Version 2)
Quarter: 2018Q4

REPORT INFORMATION
  Report Type: Spontaneous
  Country: IT (occurrence: IT)
  Receive Date: 20181210
  Receipt Date: 20181215
  Transmission Date: 20190205
  Serious: Yes (Hospitalization)
  Sender: FDA-Public Use
  Company Number: IT-TEVA-2018-IT-984379

PATIENT
  Age: 41 Year
  Sex: Female

DRUGS (10)
  1. TRANSTEC [Concomitant]
     Active Substance: BUPRENORPHINE
  2. MEDROL [Concomitant]
     Active Substance: METHYLPREDNISOLONE
     Route: 048
  3. CACIT [Concomitant]
     Active Substance: CALCIUM\VITAMIN D
     Route: 048
  4. VOLTAREN [Concomitant]
     Active Substance: DICLOFENAC SODIUM
     Route: 048
  5. ANTRA [Concomitant]
     Active Substance: OMEPRAZOLE
     Route: 048
  6. HUMIRA [Suspect]
     Active Substance: ADALIMUMAB
     Indication: RHEUMATOID ARTHRITIS
     Route: 058
     Dates: start: 20031205
  7. TAVOR [Concomitant]
  8. ALENDROS [Concomitant]
     Active Substance: ALENDRONATE SODIUM
     Route: 048
  9. LEDERFOLIN [Concomitant]
     Active Substance: LEUCOVORIN CALCIUM
     Route: 048
  10. METHOTREXATE. [Suspect]
     Active Substance: METHOTREXATE
     Indication: RHEUMATOID ARTHRITIS
     Route: 030
     Dates: start: 20050505

REACTIONS (4)
  - Uterine leiomyoma [Recovered/Resolved]
  - Metrorrhagia [Recovered/Resolved]
  - Metrorrhagia [Recovered/Resolved]
  - Iron deficiency anaemia [Recovered/Resolved]

NARRATIVE: CASE EVENT DATE: 20050701
